FAERS Safety Report 4390564-9 (Version None)
Quarter: 2004Q2

REPORT INFORMATION
  Report Type: 
  Country: None (occurrence: None)
  Receive Date: 20040630
  Receipt Date: 20040616
  Transmission Date: 20050107
  Serious: Yes (Death)
  Sender: FDA-Public Use
  Company Number: 04P-007-0264188-00

PATIENT
  Age: 62 Year
  Sex: Female
  Weight: 71 kg

DRUGS (2)
  1. HUMIRA [Suspect]
     Indication: RHEUMATOID ARTHRITIS
     Dosage: 40 MG, 1 IN 2 SEC, SUBCUTANEOUS
     Route: 058
     Dates: start: 20040401, end: 20040501
  2. DICLOPHENAC / PARACETAMOL [Concomitant]

REACTIONS (1)
  - ROAD TRAFFIC ACCIDENT [None]
